FAERS Safety Report 9910747 (Version 5)
Quarter: 2014Q2

REPORT INFORMATION
  Report Type: Spontaneous
  Country: US (occurrence: US)
  Receive Date: 20140219
  Receipt Date: 20140528
  Transmission Date: 20141212
  Serious: Yes (Hospitalization, Disabling, Other)
  Sender: FDA-Public Use
  Company Number: US-009507513-1204USA04181

PATIENT
  Sex: Female
  Weight: 81.3 kg

DRUGS (5)
  1. FOSAMAX [Suspect]
     Indication: OSTEOPOROSIS
     Dosage: 70 MG, UNK
     Route: 048
  2. FOSAMAX [Suspect]
     Indication: OSTEOPENIA
  3. FOSAMAX [Suspect]
     Route: 048
  4. FOSAMAX PLUS D [Suspect]
     Dosage: 70 MG/2800 IUQW
     Route: 048
  5. FORTEO [Concomitant]
     Indication: OSTEOPOROSIS
     Dosage: 20 MICROGRAM, QD
     Route: 058
     Dates: start: 20051230

REACTIONS (100)
  - Intramedullary rod insertion [Recovering/Resolving]
  - Intramedullary rod insertion [Recovering/Resolving]
  - Meningioma surgery [Unknown]
  - Thyroid cancer [Unknown]
  - Craniotomy [Unknown]
  - Deafness neurosensory [Unknown]
  - Alanine aminotransferase increased [Unknown]
  - Bone disorder [Unknown]
  - Femur fracture [Recovering/Resolving]
  - Femur fracture [Recovering/Resolving]
  - Body height decreased [Unknown]
  - Fall [Unknown]
  - Fall [Unknown]
  - Radius fracture [Unknown]
  - Wrist surgery [Unknown]
  - Spinal disorder [Unknown]
  - Bursitis [Unknown]
  - Scoliosis [Unknown]
  - Pulmonary mass [Unknown]
  - Arthropathy [Unknown]
  - Hand fracture [Unknown]
  - Goitre [Unknown]
  - Deep vein thrombosis [Unknown]
  - Bronchitis [Unknown]
  - Joint instability [Unknown]
  - Exostosis [Unknown]
  - Skin abrasion [Unknown]
  - Fall [Unknown]
  - Contusion [Unknown]
  - Oral candidiasis [Unknown]
  - Meningioma [Unknown]
  - Cough [Unknown]
  - Rhinitis [Not Recovered/Not Resolved]
  - Fatigue [Unknown]
  - Insomnia [Unknown]
  - Sinusitis [Unknown]
  - Peripheral embolism [Unknown]
  - Gait disturbance [Unknown]
  - Neuropathy peripheral [Not Recovered/Not Resolved]
  - Vestibular disorder [Unknown]
  - Polyuria [Unknown]
  - Pollakiuria [Unknown]
  - Cataract operation [Unknown]
  - Wrist fracture [Unknown]
  - Foreign body in eye [Unknown]
  - Peripheral vascular disorder [Unknown]
  - Varicose vein [Unknown]
  - Hiatus hernia [Unknown]
  - Thyroid disorder [Unknown]
  - Hyperglycaemia [Recovered/Resolved]
  - Chondrocalcinosis [Unknown]
  - Osteoarthritis [Unknown]
  - Intervertebral disc disorder [Unknown]
  - Lung hyperinflation [Unknown]
  - Cataract [Unknown]
  - Nephropathy [Unknown]
  - Fluid retention [Unknown]
  - Osteoarthritis [Unknown]
  - Hypokalaemia [Recovered/Resolved]
  - Chondropathy [Unknown]
  - Spondyloarthropathy [Unknown]
  - Patellofemoral pain syndrome [Unknown]
  - Adenoidectomy [Unknown]
  - Hyperparathyroidism [Unknown]
  - Infection [Unknown]
  - Resorption bone increased [Unknown]
  - Tendonitis [Unknown]
  - Herpes simplex [Unknown]
  - Investigation abnormal [Unknown]
  - Ligament sprain [Unknown]
  - Cellulitis [Unknown]
  - Enzyme level increased [Unknown]
  - Fatigue [Unknown]
  - Colonoscopy [Unknown]
  - Chest pain [Unknown]
  - Balance disorder [Unknown]
  - Avulsion fracture [Unknown]
  - Exostosis [Unknown]
  - Tendonitis [Unknown]
  - Stress fracture [Unknown]
  - Osteoarthritis [Unknown]
  - Ligament sprain [Unknown]
  - Tendon disorder [Unknown]
  - Ligament rupture [Unknown]
  - Increased tendency to bruise [Unknown]
  - Haemorrhagic diathesis [Unknown]
  - Decreased appetite [Unknown]
  - Neck pain [Unknown]
  - Pain in extremity [Unknown]
  - Pruritus [Unknown]
  - Gastrooesophageal reflux disease [Unknown]
  - Vertigo [Unknown]
  - Pruritus [Unknown]
  - Pruritus [Unknown]
  - Rash [Unknown]
  - Dizziness [Unknown]
  - Arthralgia [Unknown]
  - Arthralgia [Unknown]
  - Arthralgia [Unknown]
  - Drug ineffective [Unknown]
